FAERS Safety Report 16032623 (Version 1)
Quarter: 2019Q1

REPORT INFORMATION
  Report Type: Spontaneous
  Country: ES (occurrence: ES)
  Receive Date: 20190305
  Receipt Date: 20190305
  Transmission Date: 20190418
  Serious: Yes (Other)
  Sender: FDA-Public Use
  Company Number: ES-ASTELLAS-2019US008430

PATIENT
  Age: 75 Year
  Sex: Male

DRUGS (1)
  1. BETMIGA [Suspect]
     Active Substance: MIRABEGRON
     Indication: URINARY INCONTINENCE
     Dosage: UNK UNK, UNKNOWN FREQ.
     Route: 065
     Dates: start: 201606

REACTIONS (9)
  - Cerebral small vessel ischaemic disease [Unknown]
  - Dizziness [Recovered/Resolved]
  - Hypertension [Unknown]
  - Malignant neoplasm progression [Unknown]
  - Balance disorder [Recovered/Resolved]
  - Prostatic specific antigen increased [Unknown]
  - Gait disturbance [Unknown]
  - Fall [Unknown]
  - Bone pain [Recovered/Resolved]

NARRATIVE: CASE EVENT DATE: 201806
